FAERS Safety Report 17394442 (Version 2)
Quarter: 2020Q1

REPORT INFORMATION
  Report Type: Spontaneous
  Country: GB (occurrence: GB)
  Receive Date: 20200210
  Receipt Date: 20200211
  Transmission Date: 20200409
  Serious: Yes (Hospitalization)
  Sender: FDA-Public Use
  Company Number: GB-TEVA-2020-GB-1183278

PATIENT
  Sex: Female

DRUGS (3)
  1. ALOGLIPTIN. [Suspect]
     Active Substance: ALOGLIPTIN
     Dosage: 6.5 MG
     Route: 048
  2. ALLOPURINOL. [Suspect]
     Active Substance: ALLOPURINOL
     Dosage: 100 MG
     Route: 048
  3. APIXABAN [Suspect]
     Active Substance: APIXABAN
     Dosage: 5 MG
     Route: 048

REACTIONS (3)
  - Gout [Unknown]
  - Malaise [Unknown]
  - Blood glucose increased [Unknown]
